FAERS Safety Report 6729944-2 (Version None)
Quarter: 2010Q2

REPORT INFORMATION
  Report Type: 
  Country: None (occurrence: None)
  Receive Date: 20100518
  Receipt Date: 20100507
  Transmission Date: 20101027
  Serious: Yes (Other)
  Sender: FDA-Public Use
  Company Number: ZA-ASTRAZENECA-2010SE21360

PATIENT
  Age: 4 Year
  Sex: Female

DRUGS (6)
  1. BUDESONIDE INHALED [Suspect]
     Indication: COUGH
     Dosage: TOTAL  BUDESONIDE  DOSE  ( INHALED AND NASAL) 1200 UG/DAY
     Route: 055
  2. BUDESONIDE INHALED [Interacting]
     Indication: WHEEZING
     Dosage: TOTAL  BUDESONIDE  DOSE  ( INHALED AND NASAL) 1200 UG/DAY
     Route: 055
  3. BUDESONIDE INHALED [Interacting]
     Route: 055
  4. BUDESONIDE INHALED [Interacting]
     Route: 055
  5. BUDESONIDE  NASAL [Interacting]
     Indication: RHINITIS ALLERGIC
     Dosage: TOTAL BUDESONIDE DOSE INHALED AND NASAL 1200 UG/DAY
     Route: 045
  6. RITONAVIR [Interacting]
     Indication: HIV INFECTION

REACTIONS (4)
  - ADRENAL SUPPRESSION [None]
  - CUSHING'S SYNDROME [None]
  - DRUG INTERACTION [None]
  - OVERDOSE [None]
